FAERS Safety Report 7711962-9 (Version None)
Quarter: 2011Q3

REPORT INFORMATION
  Report Type: 
  Country: None (occurrence: None)
  Receive Date: 20110823
  Receipt Date: 20110808
  Transmission Date: 20111222
  Serious: Yes (Death, Hospitalization, Other)
  Sender: FDA-Public Use
  Company Number: 2011MA011552

PATIENT
  Age: 87 Year
  Sex: Female

DRUGS (14)
  1. LANOXIN [Concomitant]
  2. FUROSEMIDE [Concomitant]
  3. HYZAAR [Concomitant]
  4. ASPIRIN [Concomitant]
  5. ATENOLOL [Concomitant]
  6. POTASSIUM [Concomitant]
  7. DILTIAZEM [Concomitant]
  8. PREVACID [Concomitant]
  9. COMBIVENT [Concomitant]
  10. ATIVAN [Concomitant]
  11. OXYGEN [Concomitant]
  12. DIGOXIN [Suspect]
     Indication: CORONARY ARTERY DISEASE
     Dosage: .250 MG;QD;O
     Dates: start: 19990120
  13. LISINOPRIL [Concomitant]
  14. VITAMIN B [Concomitant]

REACTIONS (40)
  - DECREASED APPETITE [None]
  - BLOOD PRESSURE DECREASED [None]
  - ECCHYMOSIS [None]
  - DEMENTIA [None]
  - PULMONARY MASS [None]
  - CONTUSION [None]
  - BLOOD CHLORIDE DECREASED [None]
  - CARDIAC FAILURE CONGESTIVE [None]
  - CHRONIC OBSTRUCTIVE PULMONARY DISEASE [None]
  - PROTEIN TOTAL DECREASED [None]
  - AGITATION [None]
  - ACTIVITIES OF DAILY LIVING IMPAIRED [None]
  - RESPIRATORY FAILURE [None]
  - FACIAL BONES FRACTURE [None]
  - ENCEPHALOPATHY [None]
  - DEHYDRATION [None]
  - BLOOD ALBUMIN DECREASED [None]
  - ANXIETY [None]
  - UPPER RESPIRATORY TRACT INFECTION [None]
  - MULTIPLE INJURIES [None]
  - ECONOMIC PROBLEM [None]
  - RESTLESSNESS [None]
  - BLOOD GLUCOSE DECREASED [None]
  - BLOOD BILIRUBIN INCREASED [None]
  - BLOOD CALCIUM DECREASED [None]
  - HYPONATRAEMIA [None]
  - CARDIO-RESPIRATORY ARREST [None]
  - RESPIRATORY DEPRESSION [None]
  - ANAEMIA [None]
  - FALL [None]
  - BREATH SOUNDS ABNORMAL [None]
  - DELIRIUM [None]
  - VOMITING [None]
  - DRUG LEVEL DECREASED [None]
  - PSYCHOTIC DISORDER [None]
  - BLOOD UREA INCREASED [None]
  - COMA [None]
  - BODY TEMPERATURE INCREASED [None]
  - GAIT DISTURBANCE [None]
  - ASPARTATE AMINOTRANSFERASE INCREASED [None]
